FAERS Safety Report 24691962 (Version 1)
Quarter: 2024Q4

REPORT INFORMATION
  Report Type: Spontaneous
  Country: US (occurrence: None)
  Receive Date: 20241127
  Receipt Date: 20241127
  Transmission Date: 20250114
  Serious: Yes (Hospitalization, Disabling)
  Sender: Public
  Company Number: None

PATIENT
  Sex: Female
  Weight: 20.25 kg

DRUGS (3)
  1. TERBUTALINE [Suspect]
     Active Substance: TERBUTALINE
     Indication: Premature labour
     Dosage: 2 INJECTIONS AS NEDED SUBCUTANEOUS
     Route: 058
     Dates: start: 20190425, end: 20190425
  2. MAKENA [Suspect]
     Active Substance: HYDROXYPROGESTERONE CAPROATE
  3. BETAMETHASONE SODIUM PHOSPHATE [Suspect]
     Active Substance: BETAMETHASONE SODIUM PHOSPHATE

REACTIONS (7)
  - Exposure during pregnancy [None]
  - Maternal drugs affecting foetus [None]
  - Autism spectrum disorder [None]
  - Multiple allergies [None]
  - Asthma [None]
  - Heart rate irregular [None]
  - Disability [None]

NARRATIVE: CASE EVENT DATE: 20190425
